FAERS Safety Report 9012242 (Version 3)
Quarter: 2013Q1

REPORT INFORMATION
  Report Type: Report from Study
  Country: US (occurrence: US)
  Receive Date: 20130114
  Receipt Date: 20130211
  Transmission Date: 20140127
  Serious: Yes (Hospitalization)
  Sender: FDA-Public Use
  Company Number: US-ACTELION-A-NJ2013-77308

PATIENT
  Age: 47 Year
  Sex: Female

DRUGS (2)
  1. TRACLEER [Suspect]
     Indication: PULMONARY ARTERIAL HYPERTENSION
     Dosage: UNK
     Route: 048
     Dates: start: 20120818
  2. SILDENAFIL [Concomitant]

REACTIONS (7)
  - Cat scratch disease [Recovering/Resolving]
  - Fatigue [Recovering/Resolving]
  - Lymphadenopathy [Recovering/Resolving]
  - Burning sensation [Recovering/Resolving]
  - Pneumonia [Recovering/Resolving]
  - Anaemia [Recovering/Resolving]
  - Transfusion [Recovering/Resolving]
